FAERS Safety Report 5046690-4 (Version None)
Quarter: 2006Q3

REPORT INFORMATION
  Report Type: 
  Country: None (occurrence: None)
  Receive Date: 20060705
  Receipt Date: 20060705
  Transmission Date: 20061208
  Serious: No
  Sender: FDA-Public Use
  Company Number: None

PATIENT
  Age: 54 Year
  Sex: Female
  Weight: 68.0396 kg

DRUGS (2)
  1. CEPHALEXIN [Suspect]
     Indication: INFECTION
     Dosage: 500 MG 4 PER DAY ORAL
     Route: 048
     Dates: start: 20060508, end: 20060515
  2. CEPHALEXIN [Suspect]
     Indication: LIMB INJURY
     Dosage: 500 MG 4 PER DAY ORAL
     Route: 048
     Dates: start: 20060508, end: 20060515

REACTIONS (3)
  - COUGH [None]
  - HEADACHE [None]
  - NASAL CONGESTION [None]
